FAERS Safety Report 6387434-3 (Version None)
Quarter: 2009Q3

REPORT INFORMATION
  Report Type: 
  Country: None (occurrence: None)
  Receive Date: 20090930
  Receipt Date: 20090916
  Transmission Date: 20100115
  Serious: Yes (Other)
  Sender: FDA-Public Use
  Company Number: 230957J09USA

PATIENT
  Age: 46 Year
  Sex: Male

DRUGS (2)
  1. REBIF [Suspect]
     Indication: MULTIPLE SCLEROSIS
     Dosage: 44 MCG, 3 IN 1 WEEKS, SUBCUTANEOUS
     Route: 058
     Dates: start: 20090108
  2. INSULIN PUMP (INSULIN /00030501/) [Concomitant]

REACTIONS (4)
  - BLOOD GLUCOSE INCREASED [None]
  - FACIAL BONES FRACTURE [None]
  - FALL [None]
  - SINUSITIS [None]
